FAERS Safety Report 21979141 (Version 5)
Quarter: 2024Q1

REPORT INFORMATION
  Report Type: Spontaneous
  Country: US (occurrence: US)
  Receive Date: 20230210
  Receipt Date: 20240108
  Transmission Date: 20240410
  Serious: Yes (Other)
  Sender: FDA-Public Use
  Company Number: US-PFIZER INC-PV202300025729

PATIENT
  Age: 68 Year
  Sex: Male

DRUGS (1)
  1. XELJANZ XR [Suspect]
     Active Substance: TOFACITINIB CITRATE
     Dosage: 11 MG TABLET XR 24HR TAKE 1 TABLET BY MOUTH DAILY
     Route: 048

REACTIONS (3)
  - Chronic kidney disease [Unknown]
  - Confusional state [Unknown]
  - Pain [Unknown]
